FAERS Safety Report 8610703-0 (Version None)
Quarter: 2012Q3

REPORT INFORMATION
  Report Type: 
  Country: None (occurrence: None)
  Receive Date: 20120822
  Receipt Date: 20120814
  Transmission Date: 20120928
  Serious: No
  Sender: FDA-Public Use
  Company Number: US-BAYER-2012-084412

PATIENT

DRUGS (4)
  1. PEPTO [Concomitant]
     Dosage: 4 TABLESPOONS
  2. IMODIUM [Concomitant]
     Dosage: 6 UNK, UNK
  3. GAS-X [Concomitant]
     Dosage: 3 DF, UNK
  4. ALEVE (CAPLET) [Suspect]
     Dosage: 3 DF, UNK
     Route: 048

REACTIONS (1)
  - NO ADVERSE EVENT [None]
